FAERS Safety Report 24361525 (Version 2)
Quarter: 2025Q1

REPORT INFORMATION
  Report Type: Spontaneous
  Country: CA (occurrence: None)
  Receive Date: 20240925
  Receipt Date: 20250114
  Transmission Date: 20250408
  Serious: Yes (Other)
  Sender: ORION
  Company Number: CA-PFIZER INC-202300377298

PATIENT
  Age: 52 Year
  Sex: Male
  Weight: 62 kg

DRUGS (6)
  1. METHOTREXATE [Suspect]
     Active Substance: METHOTREXATE
     Indication: Uveitis
     Dosage: DISCONTINUED
  2. METHOTREXATE [Suspect]
     Active Substance: METHOTREXATE
     Dates: start: 2024
  3. INFLECTRA [Suspect]
     Active Substance: INFLIXIMAB-DYYB
     Indication: Uveitis
     Dates: start: 20240202, end: 20240202
  4. INFLECTRA [Suspect]
     Active Substance: INFLIXIMAB-DYYB
     Dates: start: 20240906
  5. INFLECTRA [Suspect]
     Active Substance: INFLIXIMAB-DYYB
     Dates: start: 20241205
  6. HYDROCHLOROTHIAZIDE [Concomitant]
     Active Substance: HYDROCHLOROTHIAZIDE

REACTIONS (9)
  - Hepatic fibrosis [Recovering/Resolving]
  - Macular oedema [Not Recovered/Not Resolved]
  - Vitritis [Not Recovered/Not Resolved]
  - Drug ineffective for unapproved indication [Unknown]
  - Product use in unapproved indication [Unknown]
  - Hepatic steatosis [Recovering/Resolving]
  - Weight increased [Unknown]
  - Aspartate aminotransferase increased [Recovering/Resolving]
  - Alanine aminotransferase increased [Recovering/Resolving]

NARRATIVE: CASE EVENT DATE: 20240101
